FAERS Safety Report 6052822-1 (Version None)
Quarter: 2009Q1

REPORT INFORMATION
  Report Type: 
  Country: None (occurrence: None)
  Receive Date: 20090122
  Receipt Date: 20090108
  Transmission Date: 20090719
  Serious: Yes (Hospitalization)
  Sender: FDA-Public Use
  Company Number: KV200900056

PATIENT
  Age: 49 Year
  Sex: Female
  Weight: 115.6 kg

DRUGS (20)
  1. ISOSORBIDE MONONITRATE [Suspect]
     Indication: CHEST PAIN
     Dosage: 60 MG,BID,ORAL
     Route: 048
  2. COUMADIN [Concomitant]
  3. PLAVIX [Concomitant]
  4. METHADONE HCL [Concomitant]
  5. ATENOLOL [Concomitant]
  6. EFFEXOR [Concomitant]
  7. AMITRIPTYLINE HYDROCHLORIDE [Concomitant]
  8. PRILOSEC [Concomitant]
  9. BACLOFEN [Concomitant]
  10. VISTARIL (HYDROXYZINE HYDROCHLORIDE) [Concomitant]
  11. CLONAZEPAM [Concomitant]
  12. ASPIRIN [Concomitant]
  13. NEURONTIN [Concomitant]
  14. VITAMIN D [Concomitant]
  15. HYDROCHLOROTHIAZIDE [Concomitant]
  16. LISINOPRIL [Concomitant]
  17. LIPITOR [Concomitant]
  18. LIPODERM (OMEGA-3 TRIGLYCERIDES) [Concomitant]
  19. STOOL SOFTENER (DOCUSATE SODIUM) [Concomitant]
  20. FOLIC ACID [Concomitant]

REACTIONS (8)
  - BLOOD PRESSURE DECREASED [None]
  - CHEST PAIN [None]
  - CONDITION AGGRAVATED [None]
  - DIZZINESS [None]
  - ELECTROCARDIOGRAM ABNORMAL [None]
  - MYOCARDIAL INFARCTION [None]
  - PRODUCT QUALITY ISSUE [None]
  - STENT PLACEMENT [None]
